FAERS Safety Report 19866685 (Version 2)
Quarter: 2022Q1

REPORT INFORMATION
  Report Type: Spontaneous
  Country: US (occurrence: US)
  Receive Date: 20210922
  Receipt Date: 20220110
  Transmission Date: 20220423
  Serious: No
  Sender: FDA-Public Use
  Company Number: US-BRISTOL-MYERS SQUIBB COMPANY-BMS-2021-095852

PATIENT
  Age: 32 Year
  Sex: Male

DRUGS (1)
  1. SPRYCEL [Suspect]
     Active Substance: DASATINIB
     Indication: Chronic myeloid leukaemia
     Dosage: 100 MILLIGRAM, QD
     Route: 048
     Dates: start: 20210915

REACTIONS (3)
  - Headache [Unknown]
  - Nasal congestion [Unknown]
  - Productive cough [Unknown]
